FAERS Safety Report 10852865 (Version 1)
Quarter: 2015Q1

REPORT INFORMATION
  Report Type: Spontaneous
  Country: US (occurrence: US)
  Receive Date: 20150223
  Receipt Date: 20150223
  Transmission Date: 20150721
  Serious: Yes (Other)
  Sender: FDA-Public Use
  Company Number: US-CIPLA LTD.-2015US01269

PATIENT

DRUGS (2)
  1. GEMCITABINE [Suspect]
     Active Substance: GEMCITABINE\GEMCITABINE HYDROCHLORIDE
     Indication: NEOPLASM
     Dosage: AT THE START OF THE FIRST CYCLE 40 MG/DAY ONCE DAILY 24 H ON DAY 3
     Route: 048
  2. CAPECITABINE. [Suspect]
     Active Substance: CAPECITABINE
     Indication: NEOPLASM
     Dosage: AT THE START OF THE FIRST CYCLE 650 MG/M2 TWICE DAILY 24 H APART ON DAY 1 FOR 14 DAYS

REACTIONS (3)
  - Diarrhoea [Unknown]
  - Disease progression [Unknown]
  - Hyponatraemia [Unknown]
